FAERS Safety Report 9994749 (Version 2)
Quarter: 2014Q2

REPORT INFORMATION
  Report Type: Spontaneous
  Country: AU (occurrence: None)
  Receive Date: 20140306
  Receipt Date: 20140407
  Transmission Date: 20141212
  Serious: Yes (Hospitalization, Other)
  Sender: FDA-Public Use
  Company Number: 2014AP001659

PATIENT
  Age: 35 Year
  Sex: Female

DRUGS (3)
  1. APO-AMOXI CLAY (CLAVULANATE POTASSIUM/AMOXICILLIN TRIHYDRATE) [Suspect]
     Indication: SINUSITIS
     Dosage: TAB
     Dates: start: 20140220, end: 20140222
  2. SERTRALIN /01011401/ (SERTRALINE) [Concomitant]
  3. BREVINOR (NORMENSAL) [Concomitant]

REACTIONS (3)
  - Hypersensitivity [None]
  - Purpura [None]
  - Dyspnoea [None]
